FAERS Safety Report 7275599-0 (Version None)
Quarter: 2011Q1

REPORT INFORMATION
  Report Type: 
  Country: None (occurrence: None)
  Receive Date: 20110131
  Receipt Date: 20110131
  Transmission Date: 20110831
  Serious: No
  Sender: FDA-Public Use
  Company Number: None

PATIENT
  Sex: Male
  Weight: 22.7 kg

DRUGS (1)
  1. PSS SELECT ALCOHOL PADS TRIAD ALCOHOL PADS [Suspect]

REACTIONS (4)
  - INFLUENZA LIKE ILLNESS [None]
  - INJECTION SITE ERYTHEMA [None]
  - FATIGUE [None]
  - STREPTOCOCCUS TEST POSITIVE [None]
